FAERS Safety Report 5087996-2 (Version None)
Quarter: 2006Q3

REPORT INFORMATION
  Report Type: 
  Country: None (occurrence: None)
  Receive Date: 20060824
  Receipt Date: 20060818
  Transmission Date: 20061208
  Serious: Yes (Life-Threatening, Other)
  Sender: FDA-Public Use
  Company Number: FR-BRISTOL-MYERS SQUIBB COMPANY-13483300

PATIENT
  Age: 52 Year
  Sex: Male
  Weight: 64 kg

DRUGS (3)
  1. VIDEX [Suspect]
     Route: 048
     Dates: start: 20040719
  2. SUSTIVA [Suspect]
     Route: 048
     Dates: start: 20040719
  3. VIREAD [Suspect]
     Route: 048
     Dates: start: 20040719

REACTIONS (5)
  - CYST [None]
  - HYPERTENSION [None]
  - LIPIDS INCREASED [None]
  - RENAL INFARCT [None]
  - SPLENIC INFARCTION [None]
